FAERS Safety Report 11687985 (Version 1)
Quarter: 2015Q4

REPORT INFORMATION
  Report Type: Spontaneous
  Country: US (occurrence: US)
  Receive Date: 20151030
  Receipt Date: 20151030
  Transmission Date: 20160304
  Serious: Yes (Other)
  Sender: FDA-Public Use
  Company Number: US-ABBVIE-15P-163-1486725-00

PATIENT
  Age: 38 Year
  Sex: Male

DRUGS (7)
  1. SYNTHROID [Suspect]
     Active Substance: LEVOTHYROXINE SODIUM
     Indication: PRODUCT USED FOR UNKNOWN INDICATION
     Route: 048
  2. MULTIVITAMINS [Concomitant]
     Active Substance: VITAMINS
     Indication: PRODUCT USED FOR UNKNOWN INDICATION
  3. TIROSINT [Suspect]
     Active Substance: LEVOTHYROXINE SODIUM
     Indication: PARATHYROIDECTOMY
     Dosage: 137MCG 3 DAYS/WEEK + 150 MCG 4 DAYS/WEEK
     Route: 048
     Dates: start: 20150318, end: 20150717
  4. TIROSINT [Suspect]
     Active Substance: LEVOTHYROXINE SODIUM
     Indication: THYROIDECTOMY
     Route: 048
     Dates: start: 20150129, end: 20150318
  5. TIROSINT [Suspect]
     Active Substance: LEVOTHYROXINE SODIUM
     Route: 048
     Dates: start: 20150717
  6. CYTOMEL [Suspect]
     Active Substance: LIOTHYRONINE SODIUM
     Indication: PRODUCT USED FOR UNKNOWN INDICATION
     Route: 048
     Dates: start: 20150129, end: 20150717
  7. ALPRAZOLAM. [Concomitant]
     Active Substance: ALPRAZOLAM
     Indication: ANXIETY

REACTIONS (19)
  - Joint swelling [Unknown]
  - Panic attack [Unknown]
  - Loss of employment [Unknown]
  - Hypoaesthesia [Unknown]
  - Muscle spasms [Unknown]
  - Photopsia [Unknown]
  - Overdose [Unknown]
  - General physical health deterioration [Unknown]
  - Feeling abnormal [Unknown]
  - Hypertension [Unknown]
  - Fall [Unknown]
  - Blood thyroid stimulating hormone increased [Unknown]
  - Insomnia [Unknown]
  - Peripheral swelling [Unknown]
  - Pruritus [Unknown]
  - Mobility decreased [Unknown]
  - Neoplasm malignant [Unknown]
  - Impaired self-care [Unknown]
  - Diarrhoea [Unknown]
